FAERS Safety Report 7911542-6 (Version None)
Quarter: 2011Q4

REPORT INFORMATION
  Report Type: 
  Country: None (occurrence: None)
  Receive Date: 20111114
  Receipt Date: 20111031
  Transmission Date: 20120403
  Serious: Yes (Life-Threatening)
  Sender: FDA-Public Use
  Company Number: JP-ELI_LILLY_AND_COMPANY-JP201008005262

PATIENT
  Sex: Male
  Weight: 62.6 kg

DRUGS (14)
  1. CYMBALTA [Suspect]
     Indication: DEPRESSION
     Dosage: 20 MG, QD
     Route: 048
     Dates: start: 20100608, end: 20100708
  2. ANAFRANIL [Concomitant]
     Dosage: 50 MG, BID
     Route: 048
     Dates: start: 20100805, end: 20100810
  3. ITOPRIDE HYDROCHLORIDE [Concomitant]
     Indication: GASTRITIS PROPHYLAXIS
     Dosage: 50 MG, TID
     Route: 048
     Dates: start: 20100608, end: 20100810
  4. ANAFRANIL [Concomitant]
     Indication: DEPRESSION
     Dosage: UNK
     Route: 048
     Dates: start: 20100729, end: 20100804
  5. SENNOSIDE [Concomitant]
     Indication: CONSTIPATION
     Dosage: 24 MG, QD
     Route: 048
     Dates: start: 20100608, end: 20100809
  6. CYMBALTA [Suspect]
     Dosage: 40 MG, QD
     Route: 048
     Dates: start: 20100709, end: 20100729
  7. CYMBALTA [Suspect]
     Dosage: 20 MG, QD
     Route: 048
     Dates: start: 20100730, end: 20100805
  8. REBAMIPIDE [Concomitant]
     Indication: GASTRITIS PROPHYLAXIS
     Dosage: 100 MG, TID
     Route: 048
     Dates: start: 20100608, end: 20100810
  9. ROSUVASTATIN CALCIUM [Concomitant]
     Indication: HYPERLIPIDAEMIA
     Dosage: 2.5 MG, QD
     Route: 048
     Dates: start: 20100608, end: 20100624
  10. PRAVASTATIN SODIUM [Concomitant]
     Indication: HYPERLIPIDAEMIA
     Dosage: 5 MG, QD
     Route: 048
     Dates: start: 20100625, end: 20100809
  11. SULPIRIDE [Concomitant]
     Indication: DEPRESSION
     Dosage: 50 MG, TID
     Route: 048
     Dates: start: 20100608, end: 20100708
  12. SULPIRIDE [Concomitant]
     Dosage: 25 MG, BID
     Route: 048
     Dates: start: 20100709, end: 20100722
  13. CILOSTAZOL [Concomitant]
     Indication: PROPHYLAXIS
     Dosage: 100 MG, QD
     Route: 048
     Dates: start: 20100608, end: 20100810
  14. MAGNESIUM OXIDE [Concomitant]
     Indication: CONSTIPATION
     Dosage: 0.5 G, TID
     Route: 048
     Dates: start: 20100617, end: 20100810

REACTIONS (5)
  - URINARY RETENTION [None]
  - CEREBRAL HAEMORRHAGE [None]
  - CONTUSION [None]
  - ALTERED STATE OF CONSCIOUSNESS [None]
  - FALL [None]
